FAERS Safety Report 10744787 (Version 1)
Quarter: 2015Q1

REPORT INFORMATION
  Report Type: Spontaneous
  Country: AU (occurrence: None)
  Receive Date: 20150126
  Receipt Date: 20150126
  Transmission Date: 20150721
  Serious: Yes (Death)
  Sender: FDA-Public Use
  Company Number: COR_00230_2015

PATIENT

DRUGS (3)
  1. CARBOPLATIN (CARBOPLATIN) [Suspect]
     Active Substance: CARBOPLATIN
     Indication: NON-SMALL CELL LUNG CANCER
     Dosage: AUC OF 2, DAYS 1, 8, 15, 22, 28 AND 35 OVER A 6-WEEK PERIOD
  2. PACLITAXEL (PACLITAXEL) [Suspect]
     Active Substance: PACLITAXEL
     Indication: NON-SMALL CELL LUNG CANCER
     Dosage: DAYS 1, 8, 15, 22, 28, AND 35 OVER A  6-WEEK PERIOD
  3. RADIOTHERAPY [Suspect]
     Active Substance: RADIATION THERAPY
     Indication: NON-SMALL CELL LUNG CANCER
     Dosage: 50 GY TO 70 GY IN 2 GY PER FRACTION, FIVE FRACTIONS A WEEK

REACTIONS (1)
  - Pneumonitis [None]
